FAERS Safety Report 19229021 (Version 2)
Quarter: 2021Q3

REPORT INFORMATION
  Report Type: Report from Study
  Country: US (occurrence: US)
  Receive Date: 20210506
  Receipt Date: 20210830
  Transmission Date: 20211014
  Serious: Yes (Other)
  Sender: FDA-Public Use
  Company Number: NVSC2021US044307

PATIENT
  Sex: Female

DRUGS (1)
  1. ENTRESTO [Suspect]
     Active Substance: SACUBITRIL\VALSARTAN
     Indication: PRODUCT USED FOR UNKNOWN INDICATION
     Dosage: UNK
     Route: 065

REACTIONS (9)
  - Atrial fibrillation [Unknown]
  - Heart rate decreased [Unknown]
  - Malaise [Unknown]
  - Bronchitis [Unknown]
  - Fall [Unknown]
  - Hypotension [Unknown]
  - Cough [Unknown]
  - Loss of consciousness [Unknown]
  - Memory impairment [Unknown]
